FAERS Safety Report 11987726 (Version 1)
Quarter: 2016Q1

REPORT INFORMATION
  Report Type: Spontaneous
  Country: US (occurrence: US)
  Receive Date: 20160202
  Receipt Date: 20160202
  Transmission Date: 20160526
  Serious: No
  Sender: FDA-Public Use
  Company Number: US-JNJFOC-20150208261

PATIENT
  Sex: Female

DRUGS (8)
  1. IMBRUVICA [Suspect]
     Active Substance: IBRUTINIB
     Indication: CHRONIC LYMPHOCYTIC LEUKAEMIA
     Route: 048
     Dates: start: 20140524
  2. CALCIUM [Concomitant]
     Active Substance: CALCIUM
  3. LISINOPRIL HCTZ [Concomitant]
     Active Substance: HYDROCHLOROTHIAZIDE\LISINOPRIL
  4. FISH OIL [Concomitant]
     Active Substance: FISH OIL
  5. IMBRUVICA [Suspect]
     Active Substance: IBRUTINIB
     Indication: CHRONIC LYMPHOCYTIC LEUKAEMIA
     Route: 048
  6. ONDANSETRON [Concomitant]
     Active Substance: ONDANSETRON
  7. MORPHINE [Concomitant]
     Active Substance: MORPHINE
  8. METOPROLOL. [Concomitant]
     Active Substance: METOPROLOL

REACTIONS (3)
  - Sleep apnoea syndrome [Unknown]
  - Weight increased [Unknown]
  - Blood glucose increased [Not Recovered/Not Resolved]
